FAERS Safety Report 7720621-8 (Version None)
Quarter: 2011Q3

REPORT INFORMATION
  Report Type: 
  Country: None (occurrence: None)
  Receive Date: 20110831
  Receipt Date: 20110817
  Transmission Date: 20111222
  Serious: Yes (Hospitalization, Other)
  Sender: FDA-Public Use
  Company Number: PHHY2011BR74372

PATIENT
  Sex: Female
  Weight: 108 kg

DRUGS (5)
  1. AMLODIPINE [Concomitant]
     Indication: HYPERTENSION
     Dosage: 1 DF (EVRY 12 HOURS), 50 MG
     Route: 048
  2. ENALAPRIL MALEATE [Concomitant]
     Indication: HYPERTENSION
     Dosage: 1 DF (EVERY 12 HOURS), 5 MG
     Route: 048
  3. METFFORMIN HYDROCHLORIDE [Concomitant]
     Indication: DIABETES MELLITUS
     Dosage: 2 DF, 500 MG
     Route: 048
  4. IBUPROFEN [Concomitant]
     Indication: PAIN
     Dosage: 1 DF (EVERY 12 HOURS), 600 MG
     Route: 048
  5. DIOVAN [Suspect]
     Indication: HYPERTENSION
     Dosage: BID
     Route: 048

REACTIONS (3)
  - INFECTION [None]
  - OVARIAN NEOPLASM [None]
  - POLYCYSTIC OVARIES [None]
